FAERS Safety Report 5062490-3 (Version None)
Quarter: 2006Q3

REPORT INFORMATION
  Report Type: 
  Country: None (occurrence: None)
  Receive Date: 20060721
  Receipt Date: 20060712
  Transmission Date: 20061208
  Serious: Yes (Other)
  Sender: FDA-Public Use
  Company Number: 2006060427

PATIENT
  Age: 55 Year
  Sex: Female
  Weight: 65 kg

DRUGS (4)
  1. INTRON A [Suspect]
     Indication: LYMPHOMA
     Dosage: 3 MIU TIW SUBCUTANEOUS
     Route: 058
     Dates: start: 20040401, end: 20060519
  2. PAROXETINE HCL [Concomitant]
  3. LEXOMIL (BROMAZEPAM) TABLETS [Concomitant]
  4. LACIDIPINE TABLETS [Concomitant]

REACTIONS (2)
  - LANGERHANS' CELL GRANULOMATOSIS [None]
  - LEUKOCYTOCLASTIC VASCULITIS [None]
